FAERS Safety Report 8955213 (Version 1)
Quarter: 2012Q4

REPORT INFORMATION
  Report Type: 
  Country: BR (occurrence: BR)
  Receive Date: 20121207
  Receipt Date: 20121207
  Transmission Date: 20130627
  Serious: Yes (Death, Hospitalization)
  Sender: FDA-Public Use
  Company Number: BR-ACTELION-A-CH2012-75971

PATIENT
  Age: 49 Year
  Sex: Female

DRUGS (1)
  1. TRACLEER [Suspect]
     Indication: PULMONARY ARTERIAL HYPERTENSION
     Dosage: 125 mg, bid
     Route: 048
     Dates: end: 20121109

REACTIONS (5)
  - Pulmonary arterial hypertension [Fatal]
  - Condition aggravated [Fatal]
  - Pneumonia [Fatal]
  - Pyrexia [Fatal]
  - No therapeutic response [Unknown]
